FAERS Safety Report 15505170 (Version 5)
Quarter: 2019Q1

REPORT INFORMATION
  Report Type: Spontaneous
  Country: CA (occurrence: CA)
  Receive Date: 20181016
  Receipt Date: 20190128
  Transmission Date: 20190417
  Serious: Yes (Other)
  Sender: FDA-Public Use
  Company Number: CA-BEH-2018095741

PATIENT
  Age: 10 Month
  Sex: Male

DRUGS (1)
  1. ALBUREX [Suspect]
     Active Substance: ALBUMIN HUMAN
     Indication: NEPHROTIC SYNDROME
     Dosage: 13.7 ML, TOT
     Route: 065
     Dates: start: 20171123, end: 20171123

REACTIONS (1)
  - Hypertension [Unknown]

NARRATIVE: CASE EVENT DATE: 20171123
